FAERS Safety Report 17004659 (Version 2)
Quarter: 2019Q4

REPORT INFORMATION
  Report Type: Spontaneous
  Country: US (occurrence: US)
  Receive Date: 20191107
  Receipt Date: 20191111
  Transmission Date: 20200122
  Serious: No
  Sender: FDA-Public Use
  Company Number: US-PFIZER INC-2019478263

PATIENT
  Age: 42 Year
  Sex: Male
  Weight: 113.4 kg

DRUGS (2)
  1. DEPO-TESTOSTERONE [Suspect]
     Active Substance: TESTOSTERONE CYPIONATE
     Indication: HYPOGONADISM
     Dosage: UNK
  2. DEPO-TESTOSTERONE [Suspect]
     Active Substance: TESTOSTERONE CYPIONATE
     Dosage: UNK, WEEKLY (ONE IN A WEEK, ONE-HALF ML)

REACTIONS (5)
  - Stress [Unknown]
  - Product deposit [Unknown]
  - Poor quality product administered [Unknown]
  - Malaise [Unknown]
  - Dizziness [Unknown]
